FAERS Safety Report 6145448-2 (Version None)
Quarter: 2009Q2

REPORT INFORMATION
  Report Type: 
  Country: None (occurrence: None)
  Receive Date: 20090406
  Receipt Date: 20090325
  Transmission Date: 20091009
  Serious: Yes (Death, Hospitalization)
  Sender: FDA-Public Use
  Company Number: ES-ELI_LILLY_AND_COMPANY-ES200903007228

PATIENT
  Age: 52 Year
  Sex: Male

DRUGS (12)
  1. FORTEO [Suspect]
     Indication: OSTEOPOROSIS
     Dosage: 20 UG, UNKNOWN
     Route: 058
     Dates: start: 20080701, end: 20090320
  2. SEGURIL [Concomitant]
     Dosage: UNK, UNKNOWN
     Route: 065
  3. CALCITONIN [Concomitant]
     Dosage: UNK, UNKNOWN
     Route: 065
  4. MIRTAZAPINE [Concomitant]
     Dosage: UNK, UNKNOWN
     Route: 065
  5. SINTROM [Concomitant]
     Dosage: UNK, UNKNOWN
     Route: 065
  6. LANTANON [Concomitant]
     Dosage: UNK, UNKNOWN
     Route: 065
  7. RIVOTRIL [Concomitant]
     Dosage: UNK, UNKNOWN
     Route: 065
  8. ORFIDAL [Concomitant]
     Dosage: UNK, UNKNOWN
     Route: 065
  9. PENTASA [Concomitant]
     Dosage: UNK, UNKNOWN
     Route: 065
  10. CALCIUM SANDOZ [Concomitant]
     Dosage: UNK, UNKNOWN
     Route: 065
  11. VENLAFAXINE HCL [Concomitant]
     Dosage: UNK, UNKNOWN
     Route: 065
  12. OMEPRAZOLE [Concomitant]
     Dosage: UNK, UNKNOWN
     Route: 065

REACTIONS (6)
  - CARDIAC OPERATION [None]
  - CEREBROVASCULAR ACCIDENT [None]
  - COLITIS ULCERATIVE [None]
  - COLON CANCER [None]
  - PAIN [None]
  - PYREXIA [None]
